FAERS Safety Report 6417657-6 (Version None)
Quarter: 2009Q4

REPORT INFORMATION
  Report Type: 
  Country: None (occurrence: None)
  Receive Date: 20091028
  Receipt Date: 20091014
  Transmission Date: 20100525
  Serious: Yes (Hospitalization)
  Sender: FDA-Public Use
  Company Number: PHHY2009FR44789

PATIENT
  Sex: Male

DRUGS (7)
  1. RASILEZ [Suspect]
     Dosage: 300 MG, UNK
     Dates: start: 20091001
  2. DAONIL [Concomitant]
     Dosage: 5 MG, TID
     Dates: end: 20091004
  3. EUPHYLLINE [Concomitant]
     Dosage: 300 MG, BID
     Dates: start: 20091001
  4. LORMETAZEPAM [Concomitant]
  5. HYPERIUM [Concomitant]
     Dosage: 1 MG, QD
  6. PREVISCAN [Concomitant]
     Dosage: 0.25 DF, UNK
  7. FUROSEMIDE [Concomitant]
     Dosage: 40 MG, UNK

REACTIONS (2)
  - BLOOD GLUCOSE INCREASED [None]
  - HYPOGLYCAEMIA [None]
